FAERS Safety Report 23890866 (Version 1)
Quarter: 2024Q2

REPORT INFORMATION
  Report Type: Spontaneous
  Country: US (occurrence: US)
  Receive Date: 20240523
  Receipt Date: 20240523
  Transmission Date: 20240716
  Serious: No
  Sender: FDA-Public Use
  Company Number: US-MIRATI-MT2024PM06662

PATIENT

DRUGS (4)
  1. KRAZATI [Suspect]
     Active Substance: ADAGRASIB
     Indication: Pancreatic carcinoma
     Dosage: 200 MG, QD
     Route: 048
     Dates: start: 202305
  2. KRAZATI [Suspect]
     Active Substance: ADAGRASIB
     Indication: Metastases to lung
     Dosage: 600 MG, BID
     Route: 048
     Dates: start: 202312
  3. CREON [Concomitant]
     Active Substance: PANCRELIPASE AMYLASE\PANCRELIPASE LIPASE\PANCRELIPASE PROTEASE
     Dosage: 36000 UNITS, 2 CAP WITH EVERY MEAL AND 1 CAP WITH SNACKS (8 TOTAL A DAY)
  4. INSULIN LISPRO [Concomitant]
     Active Substance: INSULIN LISPRO
     Dosage: 100 UNITS/ML, 10 ML A VIAL (INSULIN PUMP)

REACTIONS (7)
  - Photosensitivity reaction [Recovering/Resolving]
  - Sunburn [Recovering/Resolving]
  - Weight decreased [Unknown]
  - Bone pain [Recovering/Resolving]
  - Fatigue [Unknown]
  - Diarrhoea [Unknown]
  - Decreased appetite [Unknown]

NARRATIVE: CASE EVENT DATE: 20240501
